FAERS Safety Report 19274872 (Version 2)
Quarter: 2021Q3

REPORT INFORMATION
  Report Type: Report from Study
  Country: US (occurrence: US)
  Receive Date: 20210519
  Receipt Date: 20210706
  Transmission Date: 20211014
  Serious: No
  Sender: FDA-Public Use
  Company Number: US-SA-2021SA003664

PATIENT
  Age: 57 Year
  Sex: Male

DRUGS (1)
  1. DUPILUMAB [Suspect]
     Active Substance: DUPILUMAB
     Indication: CHRONIC RHINOSINUSITIS WITH NASAL POLYPS
     Dosage: 300 MG, QOW
     Route: 058
     Dates: start: 20201229

REACTIONS (3)
  - Injection site mass [Recovered/Resolved]
  - Lacrimation increased [Unknown]
  - Sleep disorder [Unknown]

NARRATIVE: CASE EVENT DATE: 2021
